FAERS Safety Report 6691808-0 (Version None)
Quarter: 2010Q2

REPORT INFORMATION
  Report Type: 
  Country: None (occurrence: None)
  Receive Date: 20100422
  Receipt Date: 20090923
  Transmission Date: 20101027
  Serious: No
  Sender: FDA-Public Use
  Company Number: US-ASTRAZENECA-2009SE14897

PATIENT
  Age: 51 Year
  Sex: Male

DRUGS (4)
  1. TOPROL-XL [Suspect]
     Route: 048
  2. DIOVAN [Suspect]
  3. ACCUPRIL [Suspect]
  4. OTHER DIURETICS [Suspect]

REACTIONS (1)
  - HYPERTENSION [None]
